FAERS Safety Report 6259418-7 (Version None)
Quarter: 2009Q3

REPORT INFORMATION
  Report Type: 
  Country: None (occurrence: None)
  Receive Date: 20090706
  Receipt Date: 20090610
  Transmission Date: 20100115
  Serious: Yes (Hospitalization)
  Sender: FDA-Public Use
  Company Number: A0794689A

PATIENT
  Sex: Male

DRUGS (1)
  1. ASPIRIN + CAFFEINE + SALICYLAMIDE POWDER (ASPIRIN+CAFFEINE+SALICYLA) [Suspect]
     Indication: DRUG USE FOR UNKNOWN INDICATION

REACTIONS (3)
  - GASTRIC PERFORATION [None]
  - HAEMORRHAGE [None]
  - INTESTINAL PERFORATION [None]
